FAERS Safety Report 10058548 (Version 3)
Quarter: 2015Q3

REPORT INFORMATION
  Report Type: Report from Study
  Country: ID (occurrence: ID)
  Receive Date: 20140404
  Receipt Date: 20150923
  Transmission Date: 20151125
  Serious: Yes (Other)
  Sender: FDA-Public Use
  Company Number: ID-ASTELLAS-2014US003372

PATIENT
  Age: 49 Year
  Sex: Male

DRUGS (1)
  1. ERLOTINIB [Suspect]
     Active Substance: ERLOTINIB
     Indication: NON-SMALL CELL LUNG CANCER METASTATIC
     Dosage: UNK, UNKNOWN FREQ.
     Route: 065
     Dates: start: 20100618

REACTIONS (1)
  - General physical health deterioration [Unknown]
